FAERS Safety Report 20487044 (Version 3)
Quarter: 2022Q1

REPORT INFORMATION
  Report Type: Spontaneous
  Country: BR (occurrence: BR)
  Receive Date: 20220217
  Receipt Date: 20220321
  Transmission Date: 20220423
  Serious: Yes (Death, Hospitalization)
  Sender: FDA-Public Use
  Company Number: BR-ABBVIE-22K-020-4283146-00

PATIENT
  Sex: Female
  Weight: 50 kg

DRUGS (1)
  1. RINVOQ [Suspect]
     Active Substance: UPADACITINIB
     Indication: Rheumatoid arthritis
     Route: 048
     Dates: start: 20210818

REACTIONS (4)
  - Cardiac arrest [Fatal]
  - COVID-19 [Unknown]
  - Lung disorder [Unknown]
  - Infarction [Fatal]
